FAERS Safety Report 7973784-3 (Version None)
Quarter: 2011Q4

REPORT INFORMATION
  Report Type: 
  Country: None (occurrence: None)
  Receive Date: 20111209
  Receipt Date: 20111130
  Transmission Date: 20120403
  Serious: Yes (Hospitalization)
  Sender: FDA-Public Use
  Company Number: DSJ-2011-25783

PATIENT
  Age: 6 Decade
  Sex: Female

DRUGS (5)
  1. BENICAR ANLO (OLMESARTAN MEDOXOMIL, AMLODIPINE BESILATE) (TABLET) [Suspect]
     Indication: HYPERTENSION
     Dosage: 20/5 MG (1 IN 1 D), PER ORAL
     Route: 048
     Dates: start: 20100701, end: 20111101
  2. METFORMIN HCL [Concomitant]
  3. CHLORTHALIDONE [Concomitant]
  4. LEVOTHYROXINE SODIUM [Concomitant]
  5. OMEPRAZOLE [Concomitant]

REACTIONS (2)
  - TACHYCARDIA [None]
  - OEDEMA PERIPHERAL [None]
